FAERS Safety Report 15577655 (Version 2)
Quarter: 2018Q4

REPORT INFORMATION
  Report Type: Report from Study
  Country: US (occurrence: US)
  Receive Date: 20181102
  Receipt Date: 20181119
  Transmission Date: 20190205
  Serious: Yes (Hospitalization)
  Sender: FDA-Public Use
  Company Number: US-ROCHE-1802418

PATIENT
  Age: 67 Year
  Sex: Female

DRUGS (10)
  1. ARIMIDEX [Concomitant]
     Active Substance: ANASTROZOLE
     Route: 048
  2. PEPCID (UNITED STATES) [Concomitant]
     Route: 048
     Dates: start: 20160626, end: 20160726
  3. CLARITIN [Concomitant]
     Active Substance: LORATADINE
     Dosage: AS NEEDED FOR ALLERGIES
     Route: 048
  4. CALCIUM CARBONATE. [Concomitant]
     Active Substance: CALCIUM CARBONATE
     Route: 048
  5. KENALOG [Concomitant]
     Active Substance: TRIAMCINOLONE ACETONIDE
     Indication: RASH
     Dosage: APPLY THIN LAYER TO RASH  AS NEEDED
     Route: 065
     Dates: start: 20151231
  6. EC-NAPROSYN [Concomitant]
     Active Substance: NAPROXEN
     Dosage: AS NEEDED WITH MEALS
     Route: 048
     Dates: start: 20160716
  7. TRASTUZUMAB. [Suspect]
     Active Substance: TRASTUZUMAB
     Indication: BREAST CANCER
     Route: 065
  8. MELATONIN [Concomitant]
     Active Substance: MELATONIN
     Dosage: NIGHTLY AS NEEDED
     Route: 048
  9. VITAMIN D3 [Concomitant]
     Active Substance: CHOLECALCIFEROL
     Route: 048
  10. BENADRYL [Concomitant]
     Active Substance: DIPHENHYDRAMINE HYDROCHLORIDE
     Dosage: AT NIGHTLY AS NEEDED FOR SLEEP
     Route: 048

REACTIONS (3)
  - Anaemia [Recovered/Resolved]
  - Neoplasm [Recovered/Resolved]
  - Pyrexia [Recovered/Resolved]

NARRATIVE: CASE EVENT DATE: 20160504
